FAERS Safety Report 8975751 (Version 1)
Quarter: 2012Q4

REPORT INFORMATION
  Report Type: 
  Country: US (occurrence: US)
  Receive Date: 20121219
  Receipt Date: 20121219
  Transmission Date: 20130627
  Serious: No
  Sender: FDA-Public Use
  Company Number: US-PFIZER INC-2012316761

PATIENT
  Age: 58 Year
  Sex: Male
  Weight: 120 kg

DRUGS (6)
  1. VIAGRA [Suspect]
     Indication: ERECTILE DYSFUNCTION
     Dosage: 100 mg, as needed
     Dates: start: 200904
  2. METOPROLOL [Concomitant]
     Indication: HYPERTENSION
     Dosage: 25 mg, 1x/day
  3. AMLODIPINE [Concomitant]
     Indication: HYPERTENSION
     Dosage: 10 mg, 1x/day
  4. SIMVASTATIN [Concomitant]
     Dosage: 40 mg, 1x/day
  5. LISINOPRIL [Concomitant]
     Dosage: 10 mg, 1x/day
  6. WELLBUTRIN [Concomitant]
     Dosage: 175 mg, 1x/day

REACTIONS (3)
  - Headache [Recovered/Resolved]
  - Nasal congestion [Recovered/Resolved]
  - Nausea [Recovered/Resolved]
